FAERS Safety Report 4695597-0 (Version None)
Quarter: 2005Q2

REPORT INFORMATION
  Report Type: 
  Country: None (occurrence: None)
  Receive Date: 20050524
  Receipt Date: 20050413
  Transmission Date: 20051028
  Serious: Yes (Death, Hospitalization)
  Sender: FDA-Public Use
  Company Number: PHHO2005CN05923

PATIENT
  Age: 54 Year
  Sex: Female
  Weight: 56 kg

DRUGS (3)
  1. ERL080A VS MMF [Suspect]
     Indication: RENAL TRANSPLANT
     Dosage: CODE NOT BROKEN
     Route: 065
     Dates: start: 20050125, end: 20050403
  2. NEORAL [Suspect]
     Indication: RENAL TRANSPLANT
     Route: 065
     Dates: start: 20050126
  3. PREDNISONE TAB [Suspect]
     Indication: RENAL TRANSPLANT
     Route: 065
     Dates: start: 20050125

REACTIONS (2)
  - LUNG INFECTION [None]
  - PYREXIA [None]
